FAERS Safety Report 5072229-3 (Version None)
Quarter: 2006Q3

REPORT INFORMATION
  Report Type: 
  Country: None (occurrence: None)
  Receive Date: 20060807
  Receipt Date: 20060407
  Transmission Date: 20061208
  Serious: Yes (Death, Hospitalization)
  Sender: FDA-Public Use
  Company Number: FR-BAYER-200610330BFR

PATIENT
  Age: 63 Year
  Sex: Male
  Weight: 65 kg

DRUGS (16)
  1. SORAFENIB [Suspect]
     Indication: MESOTHELIOMA
     Dosage: TOTAL DAILY DOSE: 800 MG  UNIT DOSE: 400 MG
     Route: 048
     Dates: start: 20060224, end: 20060307
  2. SORAFENIB [Suspect]
     Dosage: TOTAL DAILY DOSE: 800 MG  UNIT DOSE: 400 MG
     Route: 048
     Dates: start: 20060427, end: 20060509
  3. SORAFENIB [Suspect]
     Dosage: TOTAL DAILY DOSE: 400 MG  UNIT DOSE: 400 MG
     Route: 048
     Dates: start: 20060316, end: 20060427
  4. DACARBAZINE [Suspect]
     Indication: MESOTHELIOMA
     Dosage: UNIT DOSE: 1000 MG/M2
     Route: 042
     Dates: start: 20060223, end: 20060223
  5. DACARBAZINE [Suspect]
     Dosage: UNIT DOSE: 1000 MG/M2
     Route: 042
     Dates: start: 20060406, end: 20060406
  6. DACARBAZINE [Suspect]
     Dosage: UNIT DOSE: 1000 MG/M2
     Route: 042
     Dates: start: 20060316, end: 20060316
  7. SOLUPRED [Concomitant]
     Indication: FATIGUE
     Dates: start: 20060207, end: 20060222
  8. NEURONTIN [Concomitant]
     Indication: CHEST PAIN
     Dates: start: 20060217
  9. EFFERALGAN [Concomitant]
     Indication: CHEST PAIN
     Dates: start: 20060201
  10. TRAMADOL HCL [Concomitant]
     Indication: CHEST PAIN
     Dates: start: 20060201
  11. ZOPHREN [Concomitant]
     Indication: NAUSEA
     Dates: start: 20060224, end: 20060224
  12. PRIMPERAN TAB [Concomitant]
     Indication: NAUSEA
     Dates: start: 20060224
  13. IMODIUM [Concomitant]
     Indication: DIARRHOEA
     Dates: start: 20060301, end: 20060301
  14. DEXERYL [Concomitant]
     Indication: RASH
     Dates: start: 20060306
  15. DIPROSONE [Concomitant]
     Indication: RASH
     Dates: start: 20060308
  16. RIVOTRIL [Concomitant]
     Indication: CHEST PAIN
     Dates: start: 20060301

REACTIONS (13)
  - ATRIAL FIBRILLATION [None]
  - CARDIAC DISORDER [None]
  - CONFUSIONAL STATE [None]
  - DRUG TOXICITY [None]
  - HYPONATRAEMIA [None]
  - JUGULAR VEIN THROMBOSIS [None]
  - LYMPHADENOPATHY [None]
  - MESOTHELIOMA MALIGNANT ADVANCED [None]
  - OEDEMA PERIPHERAL [None]
  - PLEURAL EFFUSION [None]
  - PULMONARY EMBOLISM [None]
  - SUPRAVENTRICULAR TACHYARRHYTHMIA [None]
  - THROMBOSIS [None]
